FAERS Safety Report 24169838 (Version 1)
Quarter: 2024Q3

REPORT INFORMATION
  Report Type: Spontaneous
  Country: GB (occurrence: GB)
  Receive Date: 20240803
  Receipt Date: 20240803
  Transmission Date: 20241017
  Serious: Yes (Other)
  Sender: TEVA
  Company Number: None

PATIENT
  Age: 42 Year
  Sex: Male
  Weight: 82 kg

DRUGS (2)
  1. DIAZEPAM [Suspect]
     Active Substance: DIAZEPAM
     Indication: Back pain
     Dosage: TIME INTERVAL: 0.33333333 DAYS
     Route: 065
  2. CODEINE [Concomitant]
     Active Substance: CODEINE
     Indication: Back pain

REACTIONS (1)
  - Sleep paralysis [Recovering/Resolving]
